FAERS Safety Report 15635617 (Version 1)
Quarter: 2018Q4

REPORT INFORMATION
  Report Type: Spontaneous
  Country: US (occurrence: US)
  Receive Date: 20181120
  Receipt Date: 20181120
  Transmission Date: 20190205
  Serious: Yes (Other)
  Sender: FDA-Public Use
  Company Number: US-CIPLA LTD.-2016US10885

PATIENT

DRUGS (5)
  1. ALENDRONATE [Suspect]
     Active Substance: ALENDRONATE SODIUM
     Indication: OSTEOPOROSIS
     Dosage: UNK, ^USED AS PRESCRIBED AND IN A FORESEEABLE MANNER^
     Route: 048
     Dates: start: 2001, end: 200903
  2. FOSAMAX PLUS D [Suspect]
     Active Substance: ALENDRONATE SODIUM\CHOLECALCIFEROL
     Indication: OSTEOPOROSIS
     Dosage: UNK, ^USED AS PRESCRIBED AND IN A FORESEEABLE MANNER^
     Route: 065
     Dates: start: 2001, end: 200903
  3. FOSAMAX [Suspect]
     Active Substance: ALENDRONATE SODIUM
     Indication: OSTEOPOROSIS
     Dosage: UNK, ^USED AS PRESCRIBED AND IN A FORESEEABLE MANNER^
     Route: 048
     Dates: start: 2001, end: 200903
  4. BONIVA [Suspect]
     Active Substance: IBANDRONATE SODIUM
     Indication: OSTEOPOROSIS
     Dosage: UNK, ^USED AS PRESCRIBED AND IN A FORESEEABLE MANNER^
     Route: 065
     Dates: start: 2001, end: 200903
  5. ACTONEL [Suspect]
     Active Substance: RISEDRONATE SODIUM
     Indication: OSTEOPOROSIS
     Dosage: UNK, ^USED AS PRESCRIBED AND IN A FORESEEABLE MANNER^
     Route: 065
     Dates: start: 2001, end: 200903

REACTIONS (3)
  - Toxicity to various agents [Unknown]
  - Low turnover osteopathy [Unknown]
  - Femur fracture [Unknown]

NARRATIVE: CASE EVENT DATE: 20090425
